FAERS Safety Report 4410452-9 (Version None)
Quarter: 2004Q3

REPORT INFORMATION
  Report Type: 
  Country: None (occurrence: None)
  Receive Date: 20040729
  Receipt Date: 20020516
  Transmission Date: 20050211
  Serious: Yes (Death, Hospitalization, Disabling)
  Sender: FDA-Public Use
  Company Number: US-MERCK-0205USA02109

PATIENT
  Age: 53 Year
  Sex: Male
  Weight: 161 kg

DRUGS (7)
  1. PEPCID [Concomitant]
     Route: 048
  2. LASIX [Concomitant]
     Route: 065
     Dates: start: 20000101, end: 20020101
  3. NEURONTIN [Concomitant]
     Route: 065
  4. IBUPROFEN [Concomitant]
     Indication: PAIN
     Route: 065
  5. ZESTRIL [Concomitant]
     Indication: HYPERTENSION
     Route: 065
  6. LITHIUM CARBONATE [Concomitant]
     Indication: CLUSTER HEADACHE
     Route: 065
  7. VIOXX [Suspect]
     Indication: ARTHRITIS
     Route: 048
     Dates: start: 20000201, end: 20010501

REACTIONS (79)
  - ABDOMINAL TENDERNESS [None]
  - ADENOMATOUS POLYPOSIS COLI [None]
  - ANAEMIA [None]
  - AORTIC ATHEROSCLEROSIS [None]
  - AORTIC STENOSIS [None]
  - ARTHRALGIA [None]
  - ASPIRATION [None]
  - ASTHENIA [None]
  - B-CELL SMALL LYMPHOCYTIC LYMPHOMA [None]
  - BENIGN COLONIC POLYP [None]
  - BIOPSY BONE MARROW ABNORMAL [None]
  - CANCER PAIN [None]
  - CARDIAC FAILURE CONGESTIVE [None]
  - CARDIO-RESPIRATORY ARREST [None]
  - CARDIOVASCULAR DISORDER [None]
  - CREPITATIONS [None]
  - DEPRESSED LEVEL OF CONSCIOUSNESS [None]
  - DEPRESSION [None]
  - DIABETES MELLITUS [None]
  - DIASTOLIC DYSFUNCTION [None]
  - DIVERTICULUM [None]
  - DYSPNOEA EXERTIONAL [None]
  - DYSPNOEA PAROXYSMAL NOCTURNAL [None]
  - EMOTIONAL DISTRESS [None]
  - EMPHYSEMA [None]
  - FACIAL PALSY [None]
  - FALL [None]
  - FATIGUE [None]
  - FEMUR FRACTURE [None]
  - FLANK PAIN [None]
  - FLUID RETENTION [None]
  - GASTROINTESTINAL HAEMORRHAGE [None]
  - HAEMATURIA [None]
  - HAEMORRHAGE INTRACRANIAL [None]
  - HAEMORRHOIDS [None]
  - HEMIPARESIS [None]
  - HYPERHIDROSIS [None]
  - HYPERTENSION [None]
  - INFLUENZA [None]
  - INJURY [None]
  - INSOMNIA [None]
  - LUNG DISORDER [None]
  - LYMPHADENOPATHY [None]
  - LYMPHADENOPATHY MEDIASTINAL [None]
  - MARROW HYPERPLASIA [None]
  - MASS [None]
  - NASOPHARYNGITIS [None]
  - NAUSEA [None]
  - NON-HODGKIN'S LYMPHOMA [None]
  - NON-HODGKIN'S LYMPHOMA STAGE IV [None]
  - OEDEMA PERIPHERAL [None]
  - OESOPHAGITIS HAEMORRHAGIC [None]
  - ORTHOPNOEA [None]
  - PAIN IN EXTREMITY [None]
  - PATHOLOGICAL FRACTURE [None]
  - PITTING OEDEMA [None]
  - PLATELET FUNCTION TEST ABNORMAL [None]
  - PLEURAL EFFUSION [None]
  - PNEUMONIA ASPIRATION [None]
  - PROCTITIS [None]
  - PRODUCTIVE COUGH [None]
  - PULMONARY HYPERTENSION [None]
  - PULSE ABSENT [None]
  - PYREXIA [None]
  - RECTAL HAEMORRHAGE [None]
  - RECTAL POLYP [None]
  - RESPIRATORY DISTRESS [None]
  - RESPIRATORY FAILURE [None]
  - RESPIRATORY RATE INCREASED [None]
  - SEPSIS [None]
  - SEPTIC SHOCK [None]
  - SINUS TACHYCARDIA [None]
  - SINUSITIS [None]
  - SPLENOMEGALY [None]
  - SPUTUM DISCOLOURED [None]
  - STOMATITIS [None]
  - VENTRICULAR HYPERTROPHY [None]
  - VOMITING [None]
  - WHEEZING [None]
